FAERS Safety Report 6196505-6 (Version None)
Quarter: 2009Q2

REPORT INFORMATION
  Report Type: 
  Country: None (occurrence: None)
  Receive Date: 20090518
  Receipt Date: 20090518
  Transmission Date: 20091009
  Serious: Yes (Hospitalization)
  Sender: FDA-Public Use
  Company Number: None

PATIENT
  Age: 25 Year
  Sex: Male
  Weight: 74.8 kg

DRUGS (5)
  1. LAMICTAL [Suspect]
     Indication: BIPOLAR DISORDER
  2. PREDNISONE [Concomitant]
  3. WELLBUTRIN [Concomitant]
  4. PREVACID [Concomitant]
  5. MOTRIN [Concomitant]

REACTIONS (1)
  - STEVENS-JOHNSON SYNDROME [None]
